FAERS Safety Report 8310534 (Version 3)
Quarter: 2016Q3

REPORT INFORMATION
  Report Type: Report from Study
  Country: US (occurrence: US)
  Receive Date: 20111223
  Receipt Date: 20160712
  Transmission Date: 20161109
  Serious: Yes (Hospitalization)
  Sender: FDA-Public Use
  Company Number: US-ROCHE-1022751

PATIENT

DRUGS (4)
  1. OMALIZUMAB [Suspect]
     Active Substance: OMALIZUMAB
     Indication: PRODUCT USED FOR UNKNOWN INDICATION
     Dosage: LAST DOSE PRIOR TO ONSET OF EVENT 27/JUL/2009
     Route: 064
     Dates: start: 200312
  2. OMALIZUMAB [Suspect]
     Active Substance: OMALIZUMAB
     Dosage: LAST DOSE PRIOR TO ONSET OF EVENT 27/JUL/2009
     Route: 064
     Dates: start: 20090727
  3. LAMISIL [Concomitant]
     Active Substance: TERBINAFINE HYDROCHLORIDE
     Indication: DERMATITIS DIAPER
  4. ZYRTEC [Concomitant]
     Active Substance: CETIRIZINE HYDROCHLORIDE
     Route: 048
     Dates: start: 20110525

REACTIONS (2)
  - Croup infectious [Recovered/Resolved]
  - Maternal exposure timing unspecified [Unknown]

NARRATIVE: CASE EVENT DATE: 20110427
